FAERS Safety Report 12013729 (Version 1)
Quarter: 2016Q1

REPORT INFORMATION
  Report Type: Spontaneous
  Country: US (occurrence: US)
  Receive Date: 20160205
  Receipt Date: 20160205
  Transmission Date: 20160526
  Serious: Yes (Hospitalization)
  Sender: FDA-Public Use
  Company Number: US-TEVA-631379USA

PATIENT
  Sex: Male
  Weight: 118.04 kg

DRUGS (4)
  1. REGRANEX [Suspect]
     Active Substance: BECAPLERMIN
     Indication: SKIN ULCER
     Dosage: .01 PERCENT DAILY;
     Route: 061
     Dates: start: 2015, end: 20151204
  2. BACTRIM [Suspect]
     Active Substance: SULFAMETHOXAZOLE\TRIMETHOPRIM
     Indication: CULTURE POSITIVE
     Dosage: 800/160
     Route: 048
     Dates: start: 2015, end: 2015
  3. CIPROFLOXACIN. [Suspect]
     Active Substance: CIPROFLOXACIN
     Indication: CULTURE POSITIVE
     Route: 065
  4. GABAPENTIN. [Suspect]
     Active Substance: GABAPENTIN
     Route: 065
     Dates: start: 2015

REACTIONS (4)
  - Blood glucose increased [Recovered/Resolved]
  - Pain of skin [Recovered/Resolved]
  - Muscular weakness [Recovered/Resolved]
  - Drug effect incomplete [Recovered/Resolved]

NARRATIVE: CASE EVENT DATE: 2015
